FAERS Safety Report 16720593 (Version 1)
Quarter: 2019Q3

REPORT INFORMATION
  Report Type: Spontaneous
  Country: US (occurrence: US)
  Receive Date: 20190820
  Receipt Date: 20190820
  Transmission Date: 20191005
  Serious: Yes (Other)
  Sender: FDA-Public Use
  Company Number: US-SA-2019SA229414

PATIENT
  Sex: Female

DRUGS (1)
  1. AUBAGIO [Suspect]
     Active Substance: TERIFLUNOMIDE

REACTIONS (8)
  - Paralysis [Unknown]
  - Condition aggravated [Unknown]
  - Hypertension [Unknown]
  - Chest pain [Unknown]
  - Brain injury [Unknown]
  - Gait disturbance [Unknown]
  - Anxiety [Unknown]
  - Electrocardiogram abnormal [Unknown]
